FAERS Safety Report 18874141 (Version 1)
Quarter: 2021Q1

REPORT INFORMATION
  Report Type: Spontaneous
  Country: US (occurrence: US)
  Receive Date: 20210210
  Receipt Date: 20210210
  Transmission Date: 20210420
  Serious: No
  Sender: FDA-Public Use
  Company Number: US-TEVA-2021-US-1878180

PATIENT
  Age: 80 Year
  Sex: Female
  Weight: 53.2 kg

DRUGS (6)
  1. SYNTHROID [Suspect]
     Active Substance: LEVOTHYROXINE SODIUM
  2. ESTRADIOL. [Suspect]
     Active Substance: ESTRADIOL
  3. CALCIUM [Suspect]
     Active Substance: CALCIUM
     Route: 065
  4. VITAMIN D [Suspect]
     Active Substance: VITAMIN D NOS
     Route: 065
  5. MIRTAZAPINE. [Suspect]
     Active Substance: MIRTAZAPINE
  6. MULTIVITAMINS [Suspect]
     Active Substance: VITAMINS
     Route: 065

REACTIONS (4)
  - Hot flush [Unknown]
  - Nausea [Unknown]
  - Fatigue [Unknown]
  - Chills [Recovered/Resolved]

NARRATIVE: CASE EVENT DATE: 2021
